FAERS Safety Report 9546848 (Version 1)
Quarter: 2013Q3

REPORT INFORMATION
  Report Type: Report from Study
  Country: DE (occurrence: DE)
  Receive Date: 20130924
  Receipt Date: 20130924
  Transmission Date: 20140515
  Serious: Yes (Other)
  Sender: FDA-Public Use
  Company Number: DE-ROCHE-1279287

PATIENT
  Sex: Female
  Weight: 3.33 kg

DRUGS (4)
  1. TOCILIZUMAB [Suspect]
     Indication: RHEUMATOID ARTHRITIS
     Route: 042
     Dates: start: 20111018, end: 20111218
  2. TOCILIZUMAB [Suspect]
     Route: 065
     Dates: start: 2011, end: 20121121
  3. TOCILIZUMAB [Suspect]
     Route: 042
  4. PRENISOLONE [Concomitant]
     Indication: RHEUMATOID ARTHRITIS
     Route: 048

REACTIONS (2)
  - Developmental hip dysplasia [Unknown]
  - Maternal exposure timing unspecified [Unknown]
